FAERS Safety Report 10384353 (Version 1)
Quarter: 2014Q1

REPORT INFORMATION
  Report Type: Spontaneous
  Country: US (occurrence: None)
  Receive Date: 20140306
  Receipt Date: 20140306
  Transmission Date: 20141002
  Serious: Yes (Other)
  Sender: FDA-Public Use
  Company Number: 163-21880-13090561

PATIENT
  Age: 83 Year
  Sex: Female
  Weight: 124 kg

DRUGS (16)
  1. REVLIMD (LENALIDOMIDE) (5 MILLIGRAM, CAPSULES) [Suspect]
     Indication: RENAL CANCER
     Route: 048
     Dates: start: 20110909
  2. MIRAPEX (PRAMIPEXOLE) [Concomitant]
  3. ZOLOFT (SERTRALINE HYDROCHLORIDE) [Concomitant]
  4. XANAX (ALPRAZOLAM) [Concomitant]
  5. FUROSEMIDE [Concomitant]
  6. LEVOXYL (LEVOTHYROXINE SODIUM) [Concomitant]
  7. ARIMIDEX (ANASTROZOLE) [Concomitant]
  8. TRAZODONE HCL [Concomitant]
  9. CHILDRENS MYLANTA (SIMECO) [Concomitant]
  10. ZYRTEC (CETIRIZINE HYDROCHLORIDE) [Concomitant]
  11. FOLIC ACID [Concomitant]
  12. PROAIR HFA (SALBUTAMOL SULFATE) [Concomitant]
  13. ROBITUSSIN PM (PEDIACARE COUGH-COLD) [Concomitant]
  14. BABY ASPIRIN (ACETYLSALICYLIC ACID) [Concomitant]
  15. REQUIP (ROPINIROLE HYDROCHLORIDE) [Concomitant]
  16. ADVAIR DISKUS [Concomitant]

REACTIONS (4)
  - Full blood count decreased [None]
  - Dysphonia [None]
  - Skin discolouration [None]
  - White blood cell count decreased [None]
